FAERS Safety Report 26005449 (Version 1)
Quarter: 2025Q4

REPORT INFORMATION
  Report Type: Spontaneous
  Country: CN (occurrence: CN)
  Receive Date: 20251106
  Receipt Date: 20251106
  Transmission Date: 20260118
  Serious: Yes (Hospitalization, Other)
  Sender: PHARMOBEDIENT CONSULTING, LLC
  Company Number: CN-Pharmobedient-000419

PATIENT
  Age: 73 Year
  Sex: Male

DRUGS (8)
  1. OXALIPLATIN [Suspect]
     Active Substance: OXALIPLATIN
     Indication: Rectal cancer
     Dosage: 6 CYCLES
     Dates: start: 202005, end: 202301
  2. CAPECITABINE [Concomitant]
     Active Substance: CAPECITABINE
     Indication: Rectal cancer
     Dosage: 6 CYCLES
     Dates: start: 202005, end: 202301
  3. OXALIPLATIN [Suspect]
     Active Substance: OXALIPLATIN
     Indication: Rectal cancer
     Dosage: FIRST CYCLE
     Dates: start: 20230307
  4. OXALIPLATIN [Suspect]
     Active Substance: OXALIPLATIN
     Indication: Rectal cancer
     Dosage: SECOND CYCLE
     Dates: start: 20230330
  5. OXALIPLATIN [Suspect]
     Active Substance: OXALIPLATIN
     Indication: Rectal cancer
     Dosage: FOURTH CYCLE
     Dates: start: 20230511
  6. CAPECITABINE [Concomitant]
     Active Substance: CAPECITABINE
     Indication: Rectal cancer
     Dosage: FIRST CYCLE
     Dates: start: 20230307
  7. CAPECITABINE [Concomitant]
     Active Substance: CAPECITABINE
     Indication: Rectal cancer
     Dosage: FOURTH CYCLE
     Dates: start: 20230511
  8. CAPECITABINE [Concomitant]
     Active Substance: CAPECITABINE
     Indication: Rectal cancer
     Dosage: SECOND CYCLE
     Dates: start: 20230330

REACTIONS (6)
  - Neuropathy peripheral [Unknown]
  - Hypoaesthesia [Recovered/Resolved]
  - Insomnia [Unknown]
  - Condition aggravated [Unknown]
  - Loss of personal independence in daily activities [Recovered/Resolved]
  - Impaired quality of life [Recovered/Resolved]

NARRATIVE: CASE EVENT DATE: 20200501
